FAERS Safety Report 19367243 (Version 7)
Quarter: 2021Q3

REPORT INFORMATION
  Report Type: Spontaneous
  Country: US (occurrence: US)
  Receive Date: 20210603
  Receipt Date: 20210901
  Transmission Date: 20211014
  Serious: Yes (Other)
  Sender: FDA-Public Use
  Company Number: US-GLAXOSMITHKLINE-US2021AMR117959

PATIENT
  Age: 56 Year
  Sex: Female

DRUGS (40)
  1. TUKYSA [Suspect]
     Active Substance: TUCATINIB
     Dosage: UNK
  2. XARELTO [Suspect]
     Active Substance: RIVAROXABAN
     Indication: PRODUCT USED FOR UNKNOWN INDICATION
     Dosage: UNK, BID, WITH MEAL OR SNACK, 15 TAB DOSE PACK
     Route: 048
     Dates: start: 20210401, end: 20210408
  3. HYDROCORTISONE IV [Suspect]
     Active Substance: HYDROCORTISONE
     Indication: HYPERSENSITIVITY
     Dosage: 100 MG, AS NEEDED
     Route: 042
     Dates: start: 20210409
  4. KEPPRA [Suspect]
     Active Substance: LEVETIRACETAM
     Indication: PRODUCT USED FOR UNKNOWN INDICATION
     Dosage: UNK
     Route: 048
  5. EPA FISH OIL [ICOSAPENT] [Suspect]
     Active Substance: ICOSAPENT
     Indication: PRODUCT USED FOR UNKNOWN INDICATION
     Dosage: 1000 MG, QD, 1 CAPSULE ONCE A DIALY
  6. LIPITOR [Suspect]
     Active Substance: ATORVASTATIN CALCIUM
     Indication: PRODUCT USED FOR UNKNOWN INDICATION
     Dosage: 40 MG, QD
     Route: 048
  7. EPINEPHRINE. [Suspect]
     Active Substance: EPINEPHRINE
     Indication: HYPERSENSITIVITY
     Dosage: 0.3 MG, Z, ONCE, AS NEEDED
     Route: 030
     Dates: start: 20210409
  8. METHYLPREDNISOLONE. [Suspect]
     Active Substance: METHYLPREDNISOLONE
     Indication: HYPERSENSITIVITY
     Dosage: 125 MG, AS  NEEDED
     Route: 042
     Dates: start: 20210409
  9. DEXAMETHASONE. [Suspect]
     Active Substance: DEXAMETHASONE
     Indication: PRODUCT USED FOR UNKNOWN INDICATION
     Dosage: 1 TAB DAILY, 4MG ONE TIME ON THE FIRST DAY AND THEN 2 MG BID THEREAFTER
     Route: 048
     Dates: start: 20210629
  10. FLUCONAZOLE. [Suspect]
     Active Substance: FLUCONAZOLE
     Indication: PRODUCT USED FOR UNKNOWN INDICATION
     Dosage: 150 MG
     Route: 048
     Dates: start: 20210615, end: 20210621
  11. DYAZIDE [Suspect]
     Active Substance: HYDROCHLOROTHIAZIDE\TRIAMTERENE
     Dosage: UNK, Z EVERY 3 DAYS
  12. MEMANTINE. [Suspect]
     Active Substance: MEMANTINE
     Indication: PRODUCT USED FOR UNKNOWN INDICATION
     Dosage: UNK
     Route: 048
  13. BIOTIN [Suspect]
     Active Substance: BIOTIN
     Indication: PRODUCT USED FOR UNKNOWN INDICATION
     Dosage: UNK
     Route: 048
  14. TUKYSA [Suspect]
     Active Substance: TUCATINIB
     Dosage: 500 MG, QD
     Dates: start: 20210322
  15. TUKYSA [Suspect]
     Active Substance: TUCATINIB
     Dosage: 300 MG, BID
     Route: 048
  16. PRADAXA [Suspect]
     Active Substance: DABIGATRAN ETEXILATE MESYLATE
     Indication: PRODUCT USED FOR UNKNOWN INDICATION
     Dosage: 150 MG, BID
     Route: 048
     Dates: start: 20210408
  17. ATROPINE + DIPHENOXYLATE ORAL TABLET [Suspect]
     Active Substance: ATROPINE\DIPHENOXYLATE
     Indication: DIARRHOEA
     Dosage: UNK UNK, QID, 2.5/0.025 MG, AS NEEDED
     Route: 048
     Dates: start: 20210615
  18. DYAZIDE [Suspect]
     Active Substance: HYDROCHLOROTHIAZIDE\TRIAMTERENE
     Dosage: 1 DF, 37.5 MG ? 25 MG
     Route: 048
  19. CAPECITABINE. [Suspect]
     Active Substance: CAPECITABINE
     Dosage: 500 MG, BID, 4 TAB EACH AM AND 3 TAB EACH PM
     Route: 048
     Dates: start: 20210707
  20. TUKYSA [Suspect]
     Active Substance: TUCATINIB
     Dosage: 500 MG, QD
     Dates: start: 20210622
  21. ZETIA [Suspect]
     Active Substance: EZETIMIBE
     Indication: PRODUCT USED FOR UNKNOWN INDICATION
     Dosage: 10 MG, QD
     Route: 048
  22. LIDOCAINE?PRILOCAINE [Suspect]
     Active Substance: LIDOCAINE\PRILOCAINE
     Indication: PRODUCT USED FOR UNKNOWN INDICATION
     Dosage: 1 DF, Z,2.5%/2.5%, 1 APPLICATION TOPICALLYAS DIRECTED
     Route: 061
     Dates: start: 20210702
  23. ASPIRIN. [Suspect]
     Active Substance: ASPIRIN
     Indication: PRODUCT USED FOR UNKNOWN INDICATION
     Dosage: 81 MG, QD
     Route: 048
  24. KANJINTI [Suspect]
     Active Substance: TRASTUZUMAB-ANNS
     Indication: PRODUCT USED FOR UNKNOWN INDICATION
     Dosage: 610 MG (RECON SOLUTION)
     Route: 042
     Dates: start: 20210430
  25. FAMOTIDINE. [Suspect]
     Active Substance: FAMOTIDINE
     Indication: HYPERSENSITIVITY
     Dosage: 20 MG,  Z, AS NEEDED
     Route: 042
     Dates: start: 20210409
  26. CAPECITABINE. [Suspect]
     Active Substance: CAPECITABINE
     Indication: PRODUCT USED FOR UNKNOWN INDICATION
     Dosage: 500 MG, BID
     Route: 048
     Dates: start: 20210409
  27. TUKYSA [Suspect]
     Active Substance: TUCATINIB
     Dosage: UNK
  28. DIPHENHYDRAMINE. [Suspect]
     Active Substance: DIPHENHYDRAMINE
     Indication: HYPERSENSITIVITY
     Dosage: 50 MG,Z, AS NEEDED
     Route: 042
     Dates: start: 20210409
  29. OMEGA 3 DHA [DOCONEXENT\ICOSAPENT\OMEGA?3 FATTY ACIDS] [Suspect]
     Active Substance: DOCONEXENT\ICOSAPENT\OMEGA-3 FATTY ACIDS
     Indication: PRODUCT USED FOR UNKNOWN INDICATION
     Dosage: 1000 MG, QD
     Route: 048
  30. TUCATINIB [Suspect]
     Active Substance: TUCATINIB
     Indication: PRODUCT USED FOR UNKNOWN INDICATION
     Dosage: 150 MG, BID, WITH WATER WITH OR WITHOUT FOOD AT SAME TIME EACH DAY
     Route: 048
     Dates: start: 20210622
  31. TUCATINIB [Suspect]
     Active Substance: TUCATINIB
     Dosage: 2 DF, 1D, 300 MG, WITH OR WITHOUT FOODAT THE SAME TIME EACH DAY
     Route: 048
  32. TRIAMTERENE WITH HCTZ [Suspect]
     Active Substance: HYDROCHLOROTHIAZIDE\TRIAMTERENE
     Indication: PRODUCT USED FOR UNKNOWN INDICATION
     Dosage: 1 DF, 1 CAPSULE , 37.5/25 MG
     Route: 048
     Dates: start: 20210506
  33. DYAZIDE [Suspect]
     Active Substance: HYDROCHLOROTHIAZIDE\TRIAMTERENE
     Indication: PRODUCT USED FOR UNKNOWN INDICATION
     Dosage: UNK, QD
     Dates: start: 20210507
  34. CAPECITABINE. [Suspect]
     Active Substance: CAPECITABINE
     Dosage: 2100 MG, BID (1?14 OF EACH 21 DAY CYCLE)
     Route: 048
  35. TUKYSA [Suspect]
     Active Substance: TUCATINIB
     Indication: BREAST CANCER STAGE IV
     Dosage: 600 MG, 1D
     Dates: start: 20210322, end: 20210613
  36. GABAPENTINE [Suspect]
     Active Substance: GABAPENTIN
     Indication: PRODUCT USED FOR UNKNOWN INDICATION
     Dosage: 300 MG, TID, 1 CAPSULE TID
     Route: 048
     Dates: start: 20210608, end: 20210621
  37. NORVASC [Suspect]
     Active Substance: AMLODIPINE BESYLATE
     Indication: PRODUCT USED FOR UNKNOWN INDICATION
     Dosage: 10 MG, QD
     Route: 048
  38. TUCATINIB [Suspect]
     Active Substance: TUCATINIB
     Dosage: 100 MG, BID, WITH WATER WITH OR WITHOUT FOOD AT SAME TIME EACH DAY, TOTAL DOSE 500 MG
     Route: 048
     Dates: start: 20210622
  39. MAGIC MOUTHWASH (BENADRYL + MAALOX + LIDOCAINE) (MEDICATION UNKNOWN) [Suspect]
     Active Substance: ALUMINUM HYDROXIDE\DIMETHICONE\DIPHENHYDRAMINE\LIDOCAINE\MAGNESIUM HYDROXIDE
     Indication: ORAL PAIN
     Dosage: 5 ML, Z, EVERY 2?3 HOURS, SWISH AND SPIT/SWALLOW
     Route: 048
     Dates: start: 20210615
  40. TRASTUZUMAB. [Suspect]
     Active Substance: TRASTUZUMAB
     Indication: PRODUCT USED FOR UNKNOWN INDICATION
     Dosage: 400 MG
     Route: 042
     Dates: start: 20210430

REACTIONS (9)
  - Palmar-plantar erythrodysaesthesia syndrome [Recovered/Resolved]
  - Neuropathy peripheral [Unknown]
  - Adverse drug reaction [Unknown]
  - Stomatitis [Recovering/Resolving]
  - Dizziness [Unknown]
  - Joint swelling [Recovering/Resolving]
  - Hepatic enzyme increased [Recovered/Resolved]
  - Peripheral swelling [Recovering/Resolving]
  - Central venous catheterisation [Recovering/Resolving]

NARRATIVE: CASE EVENT DATE: 20210612
